FAERS Safety Report 16415288 (Version 1)
Quarter: 2019Q3

REPORT INFORMATION
  Report Type: Spontaneous
  Country: US (occurrence: US)
  Receive Date: 20190610
  Receipt Date: 20190610
  Transmission Date: 20191004
  Serious: Yes (Hospitalization, Disabling, Other)
  Sender: FDA-Public Use
  Company Number: None

PATIENT
  Age: 66 Year
  Sex: Male
  Weight: 87.75 kg

DRUGS (8)
  1. LYRICA [Concomitant]
     Active Substance: PREGABALIN
  2. VITAMIN QD [Concomitant]
  3. REPATHA [Suspect]
     Active Substance: EVOLOCUMAB
     Indication: BLOOD CHOLESTEROL
     Dosage: ?          QUANTITY:1 INJECTION(S);OTHER FREQUENCY:Q 2 WEEKS;?
     Route: 030
     Dates: start: 20190327, end: 20190327
  4. FISH OIL [Concomitant]
     Active Substance: FISH OIL
  5. NORCO [Concomitant]
     Active Substance: ACETAMINOPHEN\HYDROCODONE BITARTRATE
  6. ASPIRIN. [Concomitant]
     Active Substance: ASPIRIN
  7. KLONOPIN [Concomitant]
     Active Substance: CLONAZEPAM
  8. MECLIZINE [Concomitant]
     Active Substance: MECLIZINE HYDROCHLORIDE

REACTIONS (4)
  - Influenza [None]
  - Dizziness [None]
  - Acute myocardial infarction [None]
  - Chest pain [None]

NARRATIVE: CASE EVENT DATE: 20190327
